FAERS Safety Report 8806479 (Version 4)
Quarter: 2014Q2

REPORT INFORMATION
  Report Type: Spontaneous
  Country: US (occurrence: US)
  Receive Date: 20120925
  Receipt Date: 20140509
  Transmission Date: 20141212
  Serious: Yes (Disabling, Other)
  Sender: FDA-Public Use
  Company Number: US-BAYER-2012-098010

PATIENT
  Age: 49 Year
  Sex: Female

DRUGS (11)
  1. YAZ [Suspect]
     Dosage: UNK
     Dates: start: 20081103, end: 20090125
  2. ACYCLOVIR [ACICLOVIR] [Concomitant]
     Dosage: 800 MG, UNK
  3. NASONEX [Concomitant]
  4. LEVAQUIN [Concomitant]
     Dosage: 500 MG, UNK
  5. OMEGA 3 [Concomitant]
     Dosage: 1000 MG, UNK
  6. FIBER [Concomitant]
  7. PROVENTIL [Concomitant]
  8. ASMANEX [Concomitant]
  9. TRICOR [Concomitant]
     Dosage: 145 MG, UNK
  10. EFFEXOR [Concomitant]
     Dosage: 75 MG, UNK
  11. SULFAMETHOXAZOLE/TRIMETHOPRIM [Concomitant]
     Dosage: 800/160MG

REACTIONS (9)
  - Retinal vein occlusion [None]
  - Injury [None]
  - Visual acuity reduced [None]
  - Intracardiac thrombus [None]
  - Pain [None]
  - Emotional distress [None]
  - Anxiety [None]
  - Fear of death [None]
  - Pain [None]
